FAERS Safety Report 12536712 (Version 1)
Quarter: 2016Q3

REPORT INFORMATION
  Report Type: Spontaneous
  Country: US (occurrence: US)
  Receive Date: 20160707
  Receipt Date: 20160707
  Transmission Date: 20161109
  Serious: Yes (Hospitalization, Other)
  Sender: FDA-Public Use
  Company Number: US-009507513-1606USA013982

PATIENT
  Age: 36 Year
  Sex: Female

DRUGS (3)
  1. GANIRELIX ACETATE INJECTION [Concomitant]
     Active Substance: GANIRELIX ACETATE
     Dosage: UNK
  2. FOLLISTIM [Suspect]
     Active Substance: FOLLITROPIN
     Indication: ASSISTED FERTILISATION
     Dosage: 6 VIALS OF FOLLISTIM 900 IU PER CYCLE
     Dates: start: 2014, end: 2015
  3. MENOPUR [Concomitant]
     Active Substance: FOLLICLE STIMULATING HORMONE BETA POLYPEPTIDE\LUTROPIN ALFA
     Dosage: UNK

REACTIONS (5)
  - Hormone level abnormal [Unknown]
  - Inappropriate schedule of drug administration [Unknown]
  - Musculoskeletal discomfort [Not Recovered/Not Resolved]
  - Progesterone abnormal [Unknown]
  - Drug ineffective [Not Recovered/Not Resolved]

NARRATIVE: CASE EVENT DATE: 2014
